FAERS Safety Report 6760731-5 (Version None)
Quarter: 2010Q2

REPORT INFORMATION
  Report Type: 
  Country: None (occurrence: None)
  Receive Date: 20100608
  Receipt Date: 20100527
  Transmission Date: 20101027
  Serious: Yes (Hospitalization)
  Sender: FDA-Public Use
  Company Number: US-CUBIST-2010S1000384

PATIENT
  Age: 43 Year
  Sex: Male

DRUGS (1)
  1. CUBICIN [Suspect]
     Indication: MULTIPLE SCLEROSIS
     Route: 042

REACTIONS (2)
  - LOSS OF CONSCIOUSNESS [None]
  - RASH [None]
